FAERS Safety Report 7005799-6 (Version None)
Quarter: 2010Q3

REPORT INFORMATION
  Report Type: 
  Country: None (occurrence: None)
  Receive Date: 20100921
  Receipt Date: 20100908
  Transmission Date: 20110219
  Serious: Yes (Hospitalization, Other)
  Sender: FDA-Public Use
  Company Number: PHHY2010JP51722

PATIENT
  Age: 54 Year
  Sex: Male

DRUGS (4)
  1. NEORAL [Suspect]
     Indication: LIVER TRANSPLANT
     Dosage: 200 MG, DAILY
     Route: 048
     Dates: start: 20100121
  2. PREDONINE [Concomitant]
  3. PARIET [Concomitant]
     Route: 048
  4. LASIX [Concomitant]

REACTIONS (12)
  - ANAEMIA [None]
  - BLOOD BILIRUBIN INCREASED [None]
  - BLOOD CREATININE INCREASED [None]
  - BLOOD LACTATE DEHYDROGENASE INCREASED [None]
  - HAEMOLYSIS [None]
  - HAEMOLYTIC ANAEMIA [None]
  - HYPERBILIRUBINAEMIA [None]
  - PLATELET COUNT DECREASED [None]
  - PSYCHIATRIC SYMPTOM [None]
  - RENAL IMPAIRMENT [None]
  - SMALL-FOR-SIZE LIVER SYNDROME [None]
  - THROMBOTIC THROMBOCYTOPENIC PURPURA [None]
